FAERS Safety Report 23755417 (Version 2)
Quarter: 2024Q2

REPORT INFORMATION
  Report Type: Spontaneous
  Country: US (occurrence: US)
  Receive Date: 20240418
  Receipt Date: 20240422
  Transmission Date: 20240716
  Serious: Yes (Other)
  Sender: FDA-Public Use
  Company Number: US-AMGEN-USASP2024073538

PATIENT
  Sex: Male

DRUGS (7)
  1. TALIMOGENE LAHERPAREPVEC [Suspect]
     Active Substance: TALIMOGENE LAHERPAREPVEC
     Indication: Skin squamous cell carcinoma metastatic
     Dosage: 2 MILLILITER, Q3WK (10^6 PLAQUE FORMING UNITS (FIRST AND SECOND CYCLE SEPARATED BY EVERY THREE WEEKS
  2. TALIMOGENE LAHERPAREPVEC [Suspect]
     Active Substance: TALIMOGENE LAHERPAREPVEC
     Indication: Off label use
     Dosage: 2 MILLILITER, Q2WK (10^6 PLAQUE FORMING UNITS 2 CYCLES SEPARATED BY EVERY TWO WEEKS)
  3. TALIMOGENE LAHERPAREPVEC [Suspect]
     Active Substance: TALIMOGENE LAHERPAREPVEC
     Dosage: 3 MILLILITER, Q2WK (10^8 PLAQUE FORMING UNITS 5 CYCLES SEPARATED BY EVERY TWO WEEKS)
  4. TALIMOGENE LAHERPAREPVEC [Suspect]
     Active Substance: TALIMOGENE LAHERPAREPVEC
     Dosage: 4 MILLILITER, Q2WK (10^8 PLAQUE FORMING UNITS 2 CYCLES SEPARATED BY EVERY TWO WEEKS)
  5. TALIMOGENE LAHERPAREPVEC [Suspect]
     Active Substance: TALIMOGENE LAHERPAREPVEC
     Dosage: 4 MILLILITER, Q2WK (10^8 PLAQUE FORMING UNITS) ONE FULL DOSE
     Route: 065
  6. TALIMOGENE LAHERPAREPVEC [Suspect]
     Active Substance: TALIMOGENE LAHERPAREPVEC
     Dosage: 2 MILLILITER, Q2WK (10^8 PLAQUE FORMING UNITS) (4 CYCLES)
     Route: 065
  7. IBRUTINIB [Concomitant]
     Active Substance: IBRUTINIB
     Indication: Chronic lymphocytic leukaemia
     Dosage: UNK

REACTIONS (6)
  - Squamous cell carcinoma of skin [Unknown]
  - External ear cellulitis [Recovered/Resolved]
  - Drug effective for unapproved indication [Unknown]
  - Off label use [Unknown]
  - Headache [Unknown]
  - Pyrexia [Recovered/Resolved]
